FAERS Safety Report 5504244-7 (Version None)
Quarter: 2007Q4

REPORT INFORMATION
  Report Type: 
  Country: None (occurrence: None)
  Receive Date: 20071101
  Receipt Date: 20071019
  Transmission Date: 20080405
  Serious: Yes (Hospitalization)
  Sender: FDA-Public Use
  Company Number: CR-GILEAD-2007-0011707

PATIENT
  Sex: Male

DRUGS (4)
  1. TENOFOVIR DISOPROXIL FUMARATE [Suspect]
     Indication: HIV INFECTION
     Route: 048
     Dates: start: 20020704, end: 20070307
  2. DIDANOSINE [Suspect]
     Indication: DRUG RESISTANCE
     Route: 048
     Dates: start: 20020704, end: 20070307
  3. RITONAVIR [Concomitant]
     Indication: HIV INFECTION
     Route: 048
     Dates: start: 20020704, end: 20070307
  4. ATAZANAVIR SULFATE [Concomitant]
     Indication: DRUG RESISTANCE
     Route: 048
     Dates: start: 20020704, end: 20070307

REACTIONS (2)
  - GASTROENTERITIS VIRAL [None]
  - RENAL FAILURE ACUTE [None]
